FAERS Safety Report 4676899-0 (Version None)
Quarter: 2005Q2

REPORT INFORMATION
  Report Type: 
  Country: None (occurrence: None)
  Receive Date: 20050526
  Receipt Date: 20050329
  Transmission Date: 20051028
  Serious: Yes (Other)
  Sender: FDA-Public Use
  Company Number: WAES 0501USA02031

PATIENT
  Age: 64 Year
  Sex: Male

DRUGS (1)
  1. VYTORIN [Suspect]
     Dosage: 10-80 MG/DAILY/PO
     Route: 048

REACTIONS (2)
  - MUSCLE ATROPHY [None]
  - RHABDOMYOLYSIS [None]
